FAERS Safety Report 4957709-0 (Version None)
Quarter: 2006Q1

REPORT INFORMATION
  Report Type: 
  Country: None (occurrence: None)
  Receive Date: 20060324
  Receipt Date: 20060320
  Transmission Date: 20060701
  Serious: Yes (Life-Threatening)
  Sender: FDA-Public Use
  Company Number: 2006-139975-NL

PATIENT
  Age: 20 Year
  Sex: Female

DRUGS (13)
  1. MIRTAZAPINE [Suspect]
     Dosage: 15MG/30MG
     Route: 048
     Dates: start: 20060302, end: 20060303
  2. MIRTAZAPINE [Suspect]
     Dosage: 15MG/30MG
     Route: 048
     Dates: start: 20060301
  3. OLANZAPINE [Suspect]
     Dosage: 5 MG/10 MG
     Route: 048
     Dates: start: 20060222, end: 20060223
  4. OLANZAPINE [Suspect]
     Dosage: 5 MG/10 MG
     Route: 048
     Dates: start: 20060224, end: 20060303
  5. DOXEPIN HYDROCHLORIDE [Suspect]
     Dosage: 50 MG/100 MG/125 MG/150 MG
     Route: 048
     Dates: start: 20060203, end: 20060209
  6. DOXEPIN HYDROCHLORIDE [Suspect]
     Dosage: 50 MG/100 MG/125 MG/150 MG
     Route: 048
     Dates: start: 20060210, end: 20060214
  7. DOXEPIN HYDROCHLORIDE [Suspect]
     Dosage: 50 MG/100 MG/125 MG/150 MG
     Route: 048
     Dates: start: 20060215, end: 20060226
  8. DOXEPIN HYDROCHLORIDE [Suspect]
     Dosage: 50 MG/100 MG/125 MG/150 MG
     Route: 048
     Dates: start: 20060227, end: 20060303
  9. LORAZEPAM [Suspect]
     Dosage: .5/1 MG
     Route: 048
     Dates: start: 20060222, end: 20060227
  10. LORAZEPAM [Suspect]
     Dosage: .5/1 MG
     Route: 048
     Dates: start: 20060228, end: 20060303
  11. ZOPICLONE [Concomitant]
  12. LEVOTHYROXINE SODIUM [Concomitant]
  13. POTASSIUM CHLORIDE [Concomitant]

REACTIONS (2)
  - HEPATIC FAILURE [None]
  - PANCREATITIS [None]
